FAERS Safety Report 24152631 (Version 2)
Quarter: 2024Q3

REPORT INFORMATION
  Report Type: Spontaneous
  Country: US (occurrence: US)
  Receive Date: 20240730
  Receipt Date: 20240828
  Transmission Date: 20241017
  Serious: No
  Sender: SANOFI AVENTIS
  Company Number: US-SA-SAC20240725000975

PATIENT
  Age: 56 Year
  Sex: Female
  Weight: 80 kg

DRUGS (20)
  1. DUPIXENT [Suspect]
     Active Substance: DUPILUMAB
     Indication: Dermatitis atopic
     Dosage: 300 MG, QOW
     Route: 058
     Dates: start: 20240530
  2. VITAMIN D3 [Concomitant]
     Active Substance: CHOLECALCIFEROL
  3. VITAMIN D3 [Concomitant]
     Active Substance: CHOLECALCIFEROL
  4. LEVOCETIRIZINE DIHYDROCHLORIDE [Concomitant]
     Active Substance: LEVOCETIRIZINE DIHYDROCHLORIDE
  5. LEVOCETIRIZINE DIHYDROCHLORIDE [Concomitant]
     Active Substance: LEVOCETIRIZINE DIHYDROCHLORIDE
  6. NAPROXEN [Concomitant]
     Active Substance: NAPROXEN
  7. NAPROXEN [Concomitant]
     Active Substance: NAPROXEN
  8. MAGNESIUM [Concomitant]
     Active Substance: MAGNESIUM
  9. MAGNESIUM [Concomitant]
     Active Substance: MAGNESIUM
  10. EXCEDRIN EXTRA STRENGTH [Concomitant]
     Active Substance: ACETAMINOPHEN\ASPIRIN\CAFFEINE
  11. EXCEDRIN EXTRA STRENGTH [Concomitant]
     Active Substance: ACETAMINOPHEN\ASPIRIN\CAFFEINE
  12. TYLENOL [Concomitant]
     Active Substance: ACETAMINOPHEN
  13. TYLENOL [Concomitant]
     Active Substance: ACETAMINOPHEN
  14. OMEPRAZOLE [Concomitant]
     Active Substance: OMEPRAZOLE
  15. OMEPRAZOLE [Concomitant]
     Active Substance: OMEPRAZOLE
  16. TRIAMCINOLONE ACETONIDE [Concomitant]
     Active Substance: TRIAMCINOLONE ACETONIDE
  17. TRIAMCINOLONE ACETONIDE [Concomitant]
     Active Substance: TRIAMCINOLONE ACETONIDE
  18. PROGESTERONE [Concomitant]
     Active Substance: PROGESTERONE
  19. PROGESTERONE [Concomitant]
     Active Substance: PROGESTERONE
  20. SUDAFED 12 HOUR [Concomitant]
     Active Substance: PSEUDOEPHEDRINE HYDROCHLORIDE

REACTIONS (9)
  - Arthritis [Not Recovered/Not Resolved]
  - Pain [Not Recovered/Not Resolved]
  - Fatigue [Recovering/Resolving]
  - Bone pain [Unknown]
  - Skin fissures [Unknown]
  - Arthropod bite [Unknown]
  - Joint swelling [Unknown]
  - Oral herpes [Recovering/Resolving]
  - Eczema [Not Recovered/Not Resolved]

NARRATIVE: CASE EVENT DATE: 20240101
